FAERS Safety Report 4662576-9 (Version None)
Quarter: 2005Q2

REPORT INFORMATION
  Report Type: 
  Country: None (occurrence: None)
  Receive Date: 20050512
  Receipt Date: 20050428
  Transmission Date: 20051028
  Serious: Yes (Other)
  Sender: FDA-Public Use
  Company Number: 2005JP000711

PATIENT
  Age: 73 Year
  Sex: Female
  Weight: 47.3 kg

DRUGS (1)
  1. FUNGUARD(MICAFUNGIN) INJECTION [Suspect]
     Indication: BRONCHOPULMONARY ASPERGILLOSIS
     Dosage: 200.00 MG, UID/QD,IV DRIP
     Route: 041
     Dates: start: 20050323, end: 20050323

REACTIONS (1)
  - ANAPHYLACTIC SHOCK [None]
